FAERS Safety Report 4544539-7 (Version None)
Quarter: 2005Q1

REPORT INFORMATION
  Report Type: 
  Country: None (occurrence: None)
  Receive Date: 20050104
  Receipt Date: 20041230
  Transmission Date: 20050727
  Serious: Yes (Death, Other)
  Sender: FDA-Public Use
  Company Number: 04-12-1814

PATIENT
  Age: 61 Year
  Sex: Female

DRUGS (1)
  1. CLOZAPINE - IVAX PHARMACEUTICALS, INC. ORALS [Suspect]
     Dosage: 200 MG ORAL
     Route: 048
     Dates: start: 20040601, end: 20041201

REACTIONS (1)
  - PNEUMONIA [None]
